FAERS Safety Report 12140807 (Version 6)
Quarter: 2017Q1

REPORT INFORMATION
  Report Type: Report from Study
  Country: GB (occurrence: GB)
  Receive Date: 20160303
  Receipt Date: 20170221
  Transmission Date: 20170428
  Serious: Yes (Life-Threatening, Hospitalization, Disabling, Other)
  Sender: FDA-Public Use
  Company Number: BE-SA-2015SA085665

PATIENT
  Age: 36 Year
  Sex: Female

DRUGS (2)
  1. LEMTRADA [Suspect]
     Active Substance: ALEMTUZUMAB
     Indication: MULTIPLE SCLEROSIS RELAPSE
     Route: 042
     Dates: start: 20150319, end: 20150321
  2. LEMTRADA [Suspect]
     Active Substance: ALEMTUZUMAB
     Indication: MULTIPLE SCLEROSIS RELAPSE
     Route: 042
     Dates: start: 20150322, end: 20150323

REACTIONS (15)
  - Sensory disturbance [Recovering/Resolving]
  - Salivary hypersecretion [Recovering/Resolving]
  - Weight decreased [Recovered/Resolved]
  - Nuclear magnetic resonance imaging abnormal [Recovering/Resolving]
  - Aphasia [Recovering/Resolving]
  - Parosmia [Recovering/Resolving]
  - Vasculitis cerebral [Recovering/Resolving]
  - Alopecia [Recovered/Resolved]
  - Paraesthesia [Recovered/Resolved]
  - Speech disorder [Recovering/Resolving]
  - Restless legs syndrome [Not Recovered/Not Resolved]
  - Thyroid disorder [Recovered/Resolved]
  - Rash [Recovered/Resolved]
  - Partial seizures [Recovering/Resolving]
  - Rash [Recovered/Resolved]

NARRATIVE: CASE EVENT DATE: 2015
